FAERS Safety Report 16840520 (Version 2)
Quarter: 2019Q4

REPORT INFORMATION
  Report Type: Spontaneous
  Country: BH (occurrence: BH)
  Receive Date: 20190923
  Receipt Date: 20191023
  Transmission Date: 20200122
  Serious: Yes (Other)
  Sender: FDA-Public Use
  Company Number: PHHY2019BH220622

PATIENT
  Age: 31 Year
  Sex: Male

DRUGS (2)
  1. RYDAPT [Suspect]
     Active Substance: MIDOSTAURIN
     Indication: ACUTE MYELOID LEUKAEMIA
     Dosage: 50 MG, BID
     Route: 048
     Dates: start: 201902, end: 201908
  2. RYDAPT [Suspect]
     Active Substance: MIDOSTAURIN
     Dosage: 25 MG, BID
     Route: 048

REACTIONS (1)
  - Neutropenia [Unknown]
